FAERS Safety Report 8570806-6 (Version None)
Quarter: 2012Q3

REPORT INFORMATION
  Report Type: 
  Country: None (occurrence: None)
  Receive Date: 20120806
  Receipt Date: 20120731
  Transmission Date: 20120928
  Serious: Yes (Hospitalization, Disabling)
  Sender: FDA-Public Use
  Company Number: US-MERCK-1208USA000465

PATIENT

DRUGS (2)
  1. ARICEPT [Concomitant]
  2. ZETIA [Suspect]
     Indication: BLOOD CHOLESTEROL INCREASED
     Dosage: 10 MG, QD
     Route: 048
     Dates: end: 20120730

REACTIONS (2)
  - DISTURBANCE IN SEXUAL AROUSAL [None]
  - AGGRESSION [None]
